FAERS Safety Report 12850203 (Version 1)
Quarter: 2016Q4

REPORT INFORMATION
  Report Type: Spontaneous
  Country: US (occurrence: US)
  Receive Date: 20161014
  Receipt Date: 20161014
  Transmission Date: 20170207
  Serious: No
  Sender: FDA-Public Use
  Company Number: US-MEDA-2016100010

PATIENT
  Age: 43 Year
  Sex: Female

DRUGS (52)
  1. SOMA [Concomitant]
     Active Substance: CARISOPRODOL
     Dates: end: 20130731
  2. CONCERTA [Concomitant]
     Active Substance: METHYLPHENIDATE HYDROCHLORIDE
     Dates: start: 20160831
  3. GABAPENTIN. [Concomitant]
     Active Substance: GABAPENTIN
     Dates: start: 20160712, end: 20160807
  4. GABAPENTIN. [Concomitant]
     Active Substance: GABAPENTIN
     Dates: start: 20160807
  5. HYDROCODONE/ACETAMINOPHEN [Concomitant]
     Active Substance: ACETAMINOPHEN\HYDROCODONE
     Dates: start: 20140701
  6. RITUXAN [Concomitant]
     Active Substance: RITUXIMAB
     Dates: start: 20130314, end: 20130731
  7. XYREM [Suspect]
     Active Substance: SODIUM OXYBATE
     Indication: CATAPLEXY
     Route: 048
     Dates: start: 200601, end: 200604
  8. QUETIAPINE FUMARATE. [Suspect]
     Active Substance: QUETIAPINE FUMARATE
     Dates: start: 201607, end: 201607
  9. HUMIRA [Concomitant]
     Active Substance: ADALIMUMAB
     Dates: start: 20160712
  10. LOSARTAN POTASSIUM. [Concomitant]
     Active Substance: LOSARTAN POTASSIUM
     Dates: start: 20160712
  11. DOXYCYCLINE HYCLATE. [Concomitant]
     Active Substance: DOXYCYCLINE HYCLATE
     Dates: start: 20130314, end: 20130731
  12. MICROGESTIN FE 1.5 [Concomitant]
     Dates: start: 20130314
  13. VITAMIN D [Concomitant]
     Active Substance: CHOLECALCIFEROL
     Dates: end: 20130314
  14. XYREM [Suspect]
     Active Substance: SODIUM OXYBATE
     Indication: CATAPLEXY
     Route: 048
     Dates: start: 201409
  15. METHYLPHENIDATE. [Concomitant]
     Active Substance: METHYLPHENIDATE
     Dates: start: 20160712, end: 201607
  16. TACROLIMUS. [Concomitant]
     Active Substance: TACROLIMUS
     Dates: start: 20160712
  17. LORAZEPAM. [Concomitant]
     Active Substance: LORAZEPAM
     Dates: start: 20120718, end: 20140701
  18. LYRICA [Concomitant]
     Active Substance: PREGABALIN
     Dates: start: 20120710, end: 20130731
  19. NAPROSYN-EC [Concomitant]
     Dates: end: 20130731
  20. NUCYNTA [Concomitant]
     Active Substance: TAPENTADOL HYDROCHLORIDE
     Dates: end: 20120130
  21. TEMAZEPAM. [Concomitant]
     Active Substance: TEMAZEPAM
     Dates: end: 20120615
  22. ZOLPIDEM TARTRATE. [Suspect]
     Active Substance: ZOLPIDEM TARTRATE
     Route: 048
     Dates: start: 201607, end: 20160831
  23. XYREM [Suspect]
     Active Substance: SODIUM OXYBATE
     Indication: CATAPLEXY
     Route: 048
     Dates: start: 201409
  24. XYREM [Suspect]
     Active Substance: SODIUM OXYBATE
     Indication: CATAPLEXY
     Route: 048
     Dates: start: 200604, end: 201409
  25. PILOCARPINE HCL [Concomitant]
     Active Substance: PILOCARPINE HYDROCHLORIDE
     Dates: start: 20140701
  26. CITALOPRAM [Concomitant]
     Active Substance: CITALOPRAM HYDROBROMIDE
     Dates: start: 20160712
  27. FLUOCINONIDE. [Concomitant]
     Active Substance: FLUOCINONIDE
     Dates: start: 20160712
  28. VOLTAREN [Concomitant]
     Active Substance: DICLOFENAC SODIUM
     Dates: start: 20160712
  29. ZOLOFT [Concomitant]
     Active Substance: SERTRALINE HYDROCHLORIDE
     Dates: start: 20140701
  30. FOLBEE PLUS [Concomitant]
     Dates: end: 20130314
  31. XYREM [Suspect]
     Active Substance: SODIUM OXYBATE
     Indication: NARCOLEPSY
     Route: 048
     Dates: start: 201409
  32. XYREM [Suspect]
     Active Substance: SODIUM OXYBATE
     Indication: NARCOLEPSY
     Route: 048
     Dates: start: 200601, end: 200604
  33. NYSTATIN W/TRIAMCINOLONE [Concomitant]
     Dates: start: 20160712
  34. FAMOTIDINE. [Concomitant]
     Active Substance: FAMOTIDINE
     Dates: start: 20140701
  35. SAVELLA [Concomitant]
     Active Substance: MILNACIPRAN HYDROCHLORIDE
     Dates: start: 20120608
  36. XYREM [Suspect]
     Active Substance: SODIUM OXYBATE
     Indication: NARCOLEPSY
     Route: 048
     Dates: start: 201409
  37. QUETIAPINE FUMARATE. [Suspect]
     Active Substance: QUETIAPINE FUMARATE
     Dates: start: 201607
  38. BELSOMRA [Suspect]
     Active Substance: SUVOREXANT
     Route: 048
     Dates: end: 20160905
  39. CLOBETASOL [Concomitant]
     Active Substance: CLOBETASOL
     Dates: start: 20160712
  40. CLONAZEPAM. [Concomitant]
     Active Substance: CLONAZEPAM
     Dates: start: 20140701
  41. FENTANYL. [Concomitant]
     Active Substance: FENTANYL
     Dates: start: 20130801
  42. TOPIRAMATE. [Concomitant]
     Active Substance: TOPIRAMATE
     Dates: start: 20130801
  43. FLEXERIL [Concomitant]
     Active Substance: CYCLOBENZAPRINE HYDROCHLORIDE
     Dates: start: 20120626
  44. METHOTREXATE. [Concomitant]
     Active Substance: METHOTREXATE
     Dates: end: 201012
  45. ZIPSOR [Concomitant]
     Active Substance: DICLOFENAC POTASSIUM
     Dates: end: 20130731
  46. XYREM [Suspect]
     Active Substance: SODIUM OXYBATE
     Indication: NARCOLEPSY
     Route: 048
     Dates: start: 200604, end: 201409
  47. CLOBETASOL PROPIONATE. [Concomitant]
     Active Substance: CLOBETASOL PROPIONATE
     Dates: start: 20160712
  48. CYMBALTA [Concomitant]
     Active Substance: DULOXETINE HYDROCHLORIDE
     Dates: start: 20130107
  49. LOSARTAN AND HYDROCHLOROTHIAZIDE [Concomitant]
     Active Substance: HYDROCHLOROTHIAZIDE\LOSARTAN POTASSIUM
     Dates: end: 201012
  50. METHYLPHENIDATE ER [Concomitant]
     Active Substance: METHYLPHENIDATE
     Dates: end: 201012
  51. MORPHINE SULF CR [Concomitant]
     Dates: end: 20120615
  52. PAXIL CR [Concomitant]
     Active Substance: PAROXETINE HYDROCHLORIDE
     Dates: end: 20120608

REACTIONS (3)
  - Anxiety [Recovering/Resolving]
  - Depression [Recovering/Resolving]
  - Drug ineffective [Not Recovered/Not Resolved]

NARRATIVE: CASE EVENT DATE: 2016
